FAERS Safety Report 12327008 (Version 1)
Quarter: 2016Q2

REPORT INFORMATION
  Report Type: Spontaneous
  Country: US (occurrence: None)
  Receive Date: 20160502
  Receipt Date: 20160502
  Transmission Date: 20160815
  Serious: Yes (Life-Threatening, Hospitalization, Disabling, Other)
  Sender: FDA-Public Use
  Company Number: None

PATIENT
  Age: 66 Year
  Sex: Female
  Weight: 74.84 kg

DRUGS (13)
  1. ACCUTANE [Suspect]
     Active Substance: ISOTRETINOIN
     Indication: ACNE CYSTIC
     Route: 048
  2. SYNTHROID [Concomitant]
     Active Substance: LEVOTHYROXINE SODIUM
  3. BACTRIM [Concomitant]
     Active Substance: SULFAMETHOXAZOLE\TRIMETHOPRIM
  4. WELLBUTRIN [Concomitant]
     Active Substance: BUPROPION HYDROCHLORIDE
  5. TRAZODONE [Concomitant]
     Active Substance: TRAZODONE HYDROCHLORIDE
  6. CELEXA [Concomitant]
     Active Substance: CITALOPRAM HYDROBROMIDE
  7. IRON [Concomitant]
     Active Substance: IRON
  8. D-HIST [Concomitant]
  9. ELAVIL [Concomitant]
     Active Substance: AMITRIPTYLINE HYDROCHLORIDE
  10. DOXYCYCLINE HYCLATE. [Concomitant]
     Active Substance: DOXYCYCLINE HYCLATE
  11. HIZENTRA [Concomitant]
     Active Substance: HUMAN IMMUNOGLOBULIN G
  12. VITAMIN B12 [Concomitant]
     Active Substance: CYANOCOBALAMIN
  13. ESTRADIOL. [Concomitant]
     Active Substance: ESTRADIOL

REACTIONS (16)
  - Visual impairment [None]
  - Sarcoidosis [None]
  - Inflammatory bowel disease [None]
  - Immune system disorder [None]
  - Cognitive disorder [None]
  - Hypotension [None]
  - Oxygen saturation decreased [None]
  - Amnesia [None]
  - Acne [None]
  - Osteoarthritis [None]
  - Conjunctivitis [None]
  - Vitreous floaters [None]
  - Pain [None]
  - Suicidal ideation [None]
  - Depression [None]
  - Blepharitis [None]
